FAERS Safety Report 6246768-3 (Version None)
Quarter: 2009Q2

REPORT INFORMATION
  Report Type: 
  Country: None (occurrence: None)
  Receive Date: 20090624
  Receipt Date: 20090624
  Transmission Date: 20091009
  Serious: No
  Sender: FDA-Public Use
  Company Number: None

PATIENT
  Age: 52 Year
  Sex: Female
  Weight: 72.5755 kg

DRUGS (1)
  1. LATISSE [Suspect]
     Indication: GROWTH OF EYELASHES
     Dosage: DROPS NIGHTLY PO
     Route: 048
     Dates: start: 20090501, end: 20090603

REACTIONS (2)
  - GROWTH OF EYELASHES [None]
  - SKIN DISCOLOURATION [None]
